FAERS Safety Report 19469547 (Version 1)
Quarter: 2021Q2

REPORT INFORMATION
  Report Type: Report from Study
  Country: AT (occurrence: AT)
  Receive Date: 20210628
  Receipt Date: 20210628
  Transmission Date: 20210717
  Serious: Yes (Other)
  Sender: FDA-Public Use
  Company Number: NVSC2021AT136422

PATIENT
  Age: 65 Year
  Sex: Female

DRUGS (1)
  1. METFORMIN [Suspect]
     Active Substance: METFORMIN HYDROCHLORIDE
     Indication: TYPE 2 DIABETES MELLITUS
     Dosage: UNK
     Route: 065

REACTIONS (15)
  - Diabetes mellitus inadequate control [Unknown]
  - Weight decreased [Unknown]
  - Diabetic retinopathy [Unknown]
  - Transient ischaemic attack [Unknown]
  - Blindness [Unknown]
  - Glycosylated haemoglobin decreased [Unknown]
  - Hyperglycaemia [Unknown]
  - Visual impairment [Unknown]
  - Fatigue [Unknown]
  - Hypoaesthesia [Unknown]
  - Cerebrovascular accident [Unknown]
  - Retinopathy [Unknown]
  - Pollakiuria [Unknown]
  - Paraesthesia [Unknown]
  - Hypoglycaemia [Unknown]
